FAERS Safety Report 8503292-2 (Version None)
Quarter: 2012Q3

REPORT INFORMATION
  Report Type: 
  Country: None (occurrence: None)
  Receive Date: 20120702
  Receipt Date: 20120522
  Transmission Date: 20120928
  Serious: Yes (Hospitalization)
  Sender: FDA-Public Use
  Company Number: GB-022325

PATIENT
  Age: 62 Year
  Sex: Male

DRUGS (6)
  1. RAMIPRIL [Concomitant]
  2. LEUKERAN [Suspect]
     Indication: CHRONIC LYMPHOCYTIC LEUKAEMIA
     Dosage: 10 MG/M2, DAYS 1-7 EVERY 28 DAYS, ORAL
     Route: 048
     Dates: start: 20110308
  3. HUMALOG [Concomitant]
  4. THIAMINE HCL [Concomitant]
  5. SIMVASTATIN [Concomitant]
  6. FUROSEMIDE (FUROSEMIDE) [Concomitant]

REACTIONS (7)
  - MALAISE [None]
  - TREATMENT NONCOMPLIANCE [None]
  - HEADACHE [None]
  - HEMIPARESIS [None]
  - INTRACRANIAL HAEMATOMA [None]
  - INTRACRANIAL PRESSURE INCREASED [None]
  - DRUG ADMINISTRATION ERROR [None]
